FAERS Safety Report 8080991-0 (Version None)
Quarter: 2012Q1

REPORT INFORMATION
  Report Type: 
  Country: None (occurrence: None)
  Receive Date: 20120130
  Receipt Date: 20120117
  Transmission Date: 20120608
  Serious: Yes (Hospitalization)
  Sender: FDA-Public Use
  Company Number: FR-MPIJNJ-2011-06548

PATIENT

DRUGS (14)
  1. EXTOVYL [Concomitant]
  2. FRACTAL                            /01224501/ [Concomitant]
  3. BENDAMUSTINE [Suspect]
     Indication: MULTIPLE MYELOMA
     Dosage: 132.5 MG, UNK
     Route: 042
     Dates: start: 20111115, end: 20111122
  4. KARDEGIC                           /00002703/ [Concomitant]
  5. GEVATRAN                           /00247501/ [Concomitant]
  6. VELCADE [Suspect]
     Indication: MULTIPLE MYELOMA
     Dosage: 1.8 MG, UNK
     Route: 042
     Dates: start: 20111115, end: 20111206
  7. DEXAMETHASONE [Suspect]
     Indication: MULTIPLE MYELOMA
     Dosage: 20 MG, UNK
     Route: 048
     Dates: start: 20111115, end: 20111206
  8. MOPRAL                             /00661201/ [Concomitant]
  9. OLMESARTAN MEDOXOMIL AND HYDROCHLOROTHIZIDE [Concomitant]
  10. LEXOMIL [Concomitant]
  11. ESCITALOPRAM OXALATE [Concomitant]
  12. TEMERIT                            /01339101/ [Concomitant]
  13. CALCITE                            /00108001/ [Concomitant]
  14. MOVICOL                            /01053601/ [Concomitant]

REACTIONS (1)
  - LUNG DISORDER [None]
